FAERS Safety Report 9090829 (Version 4)
Quarter: 2013Q3

REPORT INFORMATION
  Report Type: Spontaneous
  Country: US (occurrence: US)
  Receive Date: 20130201
  Receipt Date: 20130812
  Transmission Date: 20140515
  Serious: No
  Sender: FDA-Public Use
  Company Number: US-VERTEX PHARMACEUTICALS INC.-2013-001442

PATIENT
  Age: 48 Year
  Sex: Female

DRUGS (5)
  1. INCIVEK [Suspect]
     Indication: HEPATITIS C
     Dosage: 750 MG, TID
     Route: 048
  2. PEGASYS [Suspect]
     Indication: HEPATITIS C
     Dosage: UNK, QW
  3. RIBAVIRIN [Suspect]
     Indication: HEPATITIS C
     Dosage: UNK
  4. K-EFFERVESCENT [Concomitant]
  5. AMILORIDE-HYDROCHLOROTHIAZIDE [Concomitant]

REACTIONS (2)
  - Rash maculo-papular [Recovered/Resolved]
  - Drug ineffective [Unknown]
